FAERS Safety Report 9328458 (Version 1)
Quarter: 2013Q2

REPORT INFORMATION
  Report Type: Spontaneous
  Country: US (occurrence: US)
  Receive Date: 20130604
  Receipt Date: 20130604
  Transmission Date: 20140414
  Serious: No
  Sender: FDA-Public Use
  Company Number: US-SANOFI-AVENTIS-2013SA006024

PATIENT
  Age: 84 Year
  Sex: Female

DRUGS (5)
  1. LANTUS SOLOSTAR [Suspect]
     Indication: TYPE 1 DIABETES MELLITUS
     Dosage: DOSE:55 UNIT(S)
  2. SOLOSTAR [Suspect]
  3. HUMALOG [Concomitant]
     Dosage: DOSE:20 UNIT(S)
  4. XARELTO [Concomitant]
     Indication: THROMBOSIS
  5. PREDNISONE [Concomitant]
     Indication: ARTHRITIS

REACTIONS (2)
  - Blood glucose increased [Not Recovered/Not Resolved]
  - Injection site bruising [Not Recovered/Not Resolved]
